FAERS Safety Report 4503143-7 (Version None)
Quarter: 2004Q4

REPORT INFORMATION
  Report Type: 
  Country: None (occurrence: None)
  Receive Date: 20041117
  Receipt Date: 20041116
  Transmission Date: 20050328
  Serious: Yes (Life-Threatening)
  Sender: FDA-Public Use
  Company Number: GB-BRISTOL-MYERS SQUIBB COMPANY-12766820

PATIENT
  Age: 45 Year
  Sex: Female
  Weight: 125 kg

DRUGS (4)
  1. CYCLOPHOSPHAMIDE [Suspect]
     Indication: BREAST CANCER
     Dates: start: 20040913, end: 20040913
  2. PACLITAXEL [Suspect]
     Indication: BREAST CANCER
     Dates: start: 20041026, end: 20041026
  3. EPIRUBICIN [Suspect]
     Indication: BREAST CANCER
     Dates: start: 20040913, end: 20040913
  4. GEMCITABINE [Suspect]
     Indication: BREAST CANCER
     Dates: start: 20041102, end: 20041102

REACTIONS (2)
  - DYSPNOEA [None]
  - PULMONARY EMBOLISM [None]
